FAERS Safety Report 14125353 (Version 4)
Quarter: 2017Q4

REPORT INFORMATION
  Report Type: Report from Study
  Country: CO (occurrence: CO)
  Receive Date: 20171025
  Receipt Date: 20171126
  Transmission Date: 20180321
  Serious: Yes (Hospitalization, Other)
  Sender: FDA-Public Use
  Company Number: PHHY2017CO155915

PATIENT
  Age: 60 Year
  Sex: Female
  Weight: 56 kg

DRUGS (6)
  1. EXEMESTANE. [Concomitant]
     Active Substance: EXEMESTANE
     Indication: METASTASES TO LIVER
     Dosage: UNK
     Route: 065
  2. AFINITOR [Suspect]
     Active Substance: EVEROLIMUS
     Indication: BREAST CANCER
     Dosage: 10 MG, QD
     Route: 048
     Dates: start: 20170827
  3. CARVEDILOL. [Suspect]
     Active Substance: CARVEDILOL
     Indication: PRODUCT USED FOR UNKNOWN INDICATION
     Route: 065
  4. AFINITOR [Suspect]
     Active Substance: EVEROLIMUS
     Indication: METASTASES TO LIVER
  5. PREGABALIN. [Suspect]
     Active Substance: PREGABALIN
     Indication: PRODUCT USED FOR UNKNOWN INDICATION
     Route: 065
  6. FUROSEMIDE. [Concomitant]
     Active Substance: FUROSEMIDE
     Indication: PRODUCT USED FOR UNKNOWN INDICATION
     Route: 065

REACTIONS (11)
  - Myocardial oedema [Unknown]
  - Asphyxia [Unknown]
  - Pulmonary oedema [Unknown]
  - Weight decreased [Unknown]
  - Fluid retention [Unknown]
  - Inflammation [Unknown]
  - Pain [Unknown]
  - Metastases to spine [Unknown]
  - Tachycardia [Unknown]
  - Cerebral disorder [Unknown]
  - Pericardial effusion [Unknown]

NARRATIVE: CASE EVENT DATE: 201709
